FAERS Safety Report 6287130-7 (Version None)
Quarter: 2009Q3

REPORT INFORMATION
  Report Type: 
  Country: None (occurrence: None)
  Receive Date: 20090724
  Receipt Date: 20090709
  Transmission Date: 20100115
  Serious: Yes (Other)
  Sender: FDA-Public Use
  Company Number: ACO_00560_2009

PATIENT
  Sex: Female
  Weight: 72 kg

DRUGS (3)
  1. TIZANIDINE HYDROCHLORIDE [Suspect]
     Indication: CERVICOBRACHIAL SYNDROME
     Dosage: (3 MG ORAL)
     Route: 048
     Dates: start: 20090518, end: 20090525
  2. LORFENAMIN [Concomitant]
  3. CEFDINIR [Concomitant]

REACTIONS (8)
  - COLD SWEAT [None]
  - DYSSTASIA [None]
  - FLUSHING [None]
  - HOT FLUSH [None]
  - HYPOTENSION [None]
  - LOSS OF CONSCIOUSNESS [None]
  - OCULAR HYPERAEMIA [None]
  - OEDEMA PERIPHERAL [None]
